FAERS Safety Report 12902172 (Version 1)
Quarter: 2016Q4

REPORT INFORMATION
  Report Type: Spontaneous
  Country: US (occurrence: US)
  Receive Date: 20161102
  Receipt Date: 20161102
  Transmission Date: 20170207
  Serious: No
  Sender: FDA-Public Use
  Company Number: US-PFIZER INC-2016507007

PATIENT
  Age: 60 Year
  Sex: Female

DRUGS (1)
  1. ZIPRASIDONE HCL [Suspect]
     Active Substance: ZIPRASIDONE HYDROCHLORIDE
     Dosage: UNK
     Dates: start: 2016, end: 2016

REACTIONS (1)
  - Ear pain [Recovered/Resolved]

NARRATIVE: CASE EVENT DATE: 2016
